FAERS Safety Report 7871976-5 (Version None)
Quarter: 2011Q4

REPORT INFORMATION
  Report Type: 
  Country: None (occurrence: None)
  Receive Date: 20111029
  Receipt Date: 20110311
  Transmission Date: 20120403
  Serious: No
  Sender: FDA-Public Use
  Company Number: US-AMGEN-USASP2011013727

PATIENT
  Age: 48 Year
  Sex: Female

DRUGS (1)
  1. ENBREL [Suspect]
     Indication: RHEUMATOID ARTHRITIS
     Dosage: 50 MG, QWK
     Dates: start: 20110210

REACTIONS (12)
  - COUGH [None]
  - RHINITIS [None]
  - DYSPNOEA [None]
  - PAIN OF SKIN [None]
  - INTRAOCULAR PRESSURE INCREASED [None]
  - CHEST PAIN [None]
  - BLOOD PRESSURE INCREASED [None]
  - BACK PAIN [None]
  - PHARYNGITIS [None]
  - EYE INFECTION [None]
  - DRY EYE [None]
  - EAR INFECTION [None]
